FAERS Safety Report 20583922 (Version 1)
Quarter: 2022Q1

REPORT INFORMATION
  Report Type: Spontaneous
  Country: US (occurrence: None)
  Receive Date: 20220311
  Receipt Date: 20220311
  Transmission Date: 20220424
  Serious: Yes (Other)
  Sender: FDA-Public Use
  Company Number: None

PATIENT
  Age: 57 Year
  Sex: Male

DRUGS (12)
  1. MEKINIST [Suspect]
     Active Substance: TRAMETINIB DIMETHYL SULFOXIDE
     Indication: Malignant melanoma
     Dosage: FREQUENCY : DAILY;?
     Route: 048
     Dates: start: 20220308, end: 20220309
  2. TAFINLAR [Suspect]
     Active Substance: DABRAFENIB MESYLATE
     Indication: Malignant melanoma
     Dosage: FREQUENCY : TWICE A DAY;?
     Route: 048
     Dates: start: 20220308, end: 20220309
  3. Aspirin 81mg tablets [Concomitant]
  4. COQ-10 100mg capsules [Concomitant]
  5. Vitamin B complex tablets [Concomitant]
  6. Vitamin C 1000mg tablets [Concomitant]
  7. Vitamin D 5000IU tablets [Concomitant]
  8. Adult Multivitamin tablets [Concomitant]
  9. Magnesium 200mg tablets [Concomitant]
  10. Jardiance 25 mg tablets [Concomitant]
  11. METFORMIN HYDROCHLORIDE [Concomitant]
     Active Substance: METFORMIN HYDROCHLORIDE
  12. ROSUVASTATIN [Concomitant]
     Active Substance: ROSUVASTATIN

REACTIONS (7)
  - Abdominal pain [None]
  - Nausea [None]
  - Retching [None]
  - Constipation [None]
  - Chest discomfort [None]
  - Skin irritation [None]
  - Erythema [None]

NARRATIVE: CASE EVENT DATE: 20220308
